FAERS Safety Report 7498387-9 (Version None)
Quarter: 2011Q2

REPORT INFORMATION
  Report Type: 
  Country: None (occurrence: None)
  Receive Date: 20110524
  Receipt Date: 20101020
  Transmission Date: 20111010
  Serious: Yes (Other)
  Sender: FDA-Public Use
  Company Number: US-BAYER-201022847NA

PATIENT
  Age: 51 Year
  Sex: Female
  Weight: 91.364 kg

DRUGS (30)
  1. UNSPECIFIED GADOLINIUM BASED CONTRAST AGENT [Suspect]
     Indication: NUCLEAR MAGNETIC RESONANCE IMAGING ABDOMINAL
     Dates: start: 20090805, end: 20090805
  2. OMNISCAN [Suspect]
     Indication: NUCLEAR MAGNETIC RESONANCE IMAGING ABDOMINAL
     Dates: start: 20070802, end: 20070802
  3. DIOVAN [Concomitant]
  4. MAGNEVIST [Suspect]
     Indication: NUCLEAR MAGNETIC RESONANCE IMAGING ABDOMINAL
     Route: 042
     Dates: start: 20060210, end: 20060210
  5. OPTIMARK [Suspect]
     Indication: NUCLEAR MAGNETIC RESONANCE IMAGING ABDOMINAL
     Route: 042
     Dates: start: 20051219, end: 20051219
  6. COREG [Concomitant]
  7. HYTRIN [Concomitant]
  8. NORVASC [Concomitant]
  9. LISINOPRIL [Concomitant]
  10. SOLU-MEDROL [Concomitant]
  11. ATENOLOL [Concomitant]
  12. SYNTHROID [Concomitant]
  13. SPIRONOLACTONE [Concomitant]
  14. LABETALOL [Concomitant]
  15. INTERFERON [Concomitant]
  16. LACTULOSE [Concomitant]
  17. LASIX [Concomitant]
  18. BLOOD AND RELATED PRODUCTS [Concomitant]
     Dosage: EVERY 1 TO 2 MONTHS
  19. INSULIN [Concomitant]
  20. DIPHENHYDRAMINE HCL [Concomitant]
  21. UNSPECIFIED GADOLINIUM BASED CONTRAST AGENT [Suspect]
     Indication: NUCLEAR MAGNETIC RESONANCE IMAGING
     Dates: start: 20060827, end: 20060827
  22. UNSPECIFIED GADOLINIUM BASED CONTRAST AGENT [Suspect]
     Dates: start: 20060828, end: 20060828
  23. OMNISCAN [Suspect]
     Indication: NUCLEAR MAGNETIC RESONANCE IMAGING
     Route: 042
     Dates: start: 20070412, end: 20070412
  24. CYTOMEL [Concomitant]
  25. ALTACE [Concomitant]
  26. EPOGEN [Concomitant]
  27. PHOSLO [Concomitant]
  28. OMNISCAN [Suspect]
     Dates: start: 20070914, end: 20070914
  29. CATAPRES [Concomitant]
  30. BUMETANIDE [Concomitant]

REACTIONS (17)
  - RASH [None]
  - SKIN INDURATION [None]
  - SKIN DISCOLOURATION [None]
  - PEAU D'ORANGE [None]
  - SKIN EXFOLIATION [None]
  - OEDEMA PERIPHERAL [None]
  - PETECHIAE [None]
  - PAIN IN EXTREMITY [None]
  - SKIN LESION [None]
  - PAPULE [None]
  - NEPHROGENIC SYSTEMIC FIBROSIS [None]
  - OEDEMA [None]
  - SKIN HYPERPIGMENTATION [None]
  - SKIN HYPERTROPHY [None]
  - OCULAR ICTERUS [None]
  - BURNING SENSATION [None]
  - ERYTHEMA [None]
